FAERS Safety Report 8773922 (Version 2)
Quarter: 2012Q4

REPORT INFORMATION
  Report Type: 
  Country: US (occurrence: US)
  Receive Date: 20120907
  Receipt Date: 20121112
  Transmission Date: 20130627
  Serious: Yes (Life-Threatening, Hospitalization, Other)
  Sender: FDA-Public Use
  Company Number: US-ASTRAZENECA-2012SE65569

PATIENT
  Age: 75 Year
  Sex: Male
  Weight: 87.5 kg

DRUGS (8)
  1. CRESTOR [Suspect]
     Indication: HYPERLIPIDAEMIA
     Route: 048
  2. CRESTOR [Suspect]
     Indication: HYPERLIPIDAEMIA
     Route: 048
  3. CRESTOR [Suspect]
     Indication: HYPERLIPIDAEMIA
     Route: 048
  4. CRESTOR [Suspect]
     Indication: HYPERLIPIDAEMIA
     Route: 048
  5. CRESTOR [Suspect]
     Indication: HYPERLIPIDAEMIA
     Route: 048
     Dates: start: 201108, end: 20120620
  6. ATENOLOL [Suspect]
     Indication: HYPERTENSION
     Route: 048
     Dates: start: 2000
  7. JANUVIA [Concomitant]
     Indication: TYPE 2 DIABETES MELLITUS
     Route: 048
  8. FAMOTIDINE [Concomitant]
     Indication: GASTROOESOPHAGEAL REFLUX DISEASE
     Dosage: 20, BID
     Route: 048

REACTIONS (3)
  - Renal failure acute [Recovering/Resolving]
  - Azotaemia [Recovered/Resolved]
  - Blood creatinine increased [Recovering/Resolving]
